FAERS Safety Report 4679139-1 (Version None)
Quarter: 2005Q2

REPORT INFORMATION
  Report Type: 
  Country: None (occurrence: None)
  Receive Date: 20050527
  Receipt Date: 20050201
  Transmission Date: 20051028
  Serious: No
  Sender: FDA-Public Use
  Company Number: PHEH2005US01510

PATIENT
  Age: 25 Year
  Sex: Female

DRUGS (1)
  1. ZELNORM [Suspect]
     Indication: IRRITABLE BOWEL SYNDROME
     Dosage: 6 MG, BID, ORAL
     Route: 048
     Dates: start: 20050119, end: 20050125

REACTIONS (4)
  - ABNORMAL SENSATION IN EYE [None]
  - GLOSSODYNIA [None]
  - SWELLING FACE [None]
  - TOOTHACHE [None]
